FAERS Safety Report 7259541-4 (Version None)
Quarter: 2011Q1

REPORT INFORMATION
  Report Type: 
  Country: None (occurrence: None)
  Receive Date: 20110129
  Receipt Date: 20100329
  Transmission Date: 20110831
  Serious: Yes (Other)
  Sender: FDA-Public Use
  Company Number: US-PFIZER INC-2010040721

PATIENT
  Sex: Female
  Weight: 88.4 kg

DRUGS (2)
  1. SYNTHROID [Concomitant]
     Dosage: UNK
  2. RELPAX [Suspect]
     Indication: MIGRAINE
     Dosage: 40 MG, AS NEEDED
     Route: 048

REACTIONS (1)
  - ARTHRALGIA [None]
